FAERS Safety Report 4750431-5 (Version None)
Quarter: 2005Q3

REPORT INFORMATION
  Report Type: 
  Country: None (occurrence: None)
  Receive Date: 20050823
  Receipt Date: 20050816
  Transmission Date: 20060218
  Serious: Yes (Hospitalization)
  Sender: FDA-Public Use
  Company Number: PHBS2005AT11927

PATIENT
  Sex: Female

DRUGS (1)
  1. ZOMETA [Suspect]
     Indication: MULTIPLE MYELOMA
     Route: 042
     Dates: start: 20040101

REACTIONS (4)
  - ASEPTIC NECROSIS BONE [None]
  - BONE TRIMMING [None]
  - OSTEOMYELITIS CHRONIC [None]
  - STREPTOCOCCAL INFECTION [None]
